FAERS Safety Report 8449548-3 (Version None)
Quarter: 2012Q2

REPORT INFORMATION
  Report Type: 
  Country: None (occurrence: None)
  Receive Date: 20120620
  Receipt Date: 20120615
  Transmission Date: 20120825
  Serious: Yes (Other)
  Sender: FDA-Public Use
  Company Number: BR-AMGEN-BRASP2012037552

PATIENT
  Age: 44 Year

DRUGS (1)
  1. VECTIBIX [Suspect]
     Indication: PRODUCT USED FOR UNKNOWN INDICATION

REACTIONS (6)
  - LOCALISED OEDEMA [None]
  - DYSAESTHESIA [None]
  - ASPHYXIA [None]
  - SKIN REACTION [None]
  - ARTHRALGIA [None]
  - MYALGIA [None]
